FAERS Safety Report 24556522 (Version 1)
Quarter: 2024Q4

REPORT INFORMATION
  Report Type: Spontaneous
  Country: US (occurrence: US)
  Receive Date: 20241028
  Receipt Date: 20241028
  Transmission Date: 20250114
  Serious: No
  Sender: MYLAN
  Company Number: US-MYLANLABS-2024M1096572

PATIENT
  Age: 61 Year
  Sex: Female
  Weight: 68 kg

DRUGS (5)
  1. DOXEPIN [Suspect]
     Active Substance: DOXEPIN
     Indication: Pruritus
     Dosage: UNK
     Route: 065
  2. DUPIXENT [Suspect]
     Active Substance: DUPILUMAB
     Indication: Asthma
     Dosage: 600 MILLIGRAM,(1X)
     Route: 058
     Dates: start: 20231226, end: 20231226
  3. DUPIXENT [Suspect]
     Active Substance: DUPILUMAB
     Indication: Neurodermatitis
     Dosage: 300 MILLIGRAM ,QW(WEEKLY ONCE QOW)
     Route: 058
     Dates: start: 20240109
  4. DUPIXENT [Suspect]
     Active Substance: DUPILUMAB
     Indication: Dermatitis atopic
  5. DUPIXENT [Suspect]
     Active Substance: DUPILUMAB
     Indication: Eczema

REACTIONS (9)
  - Rash pruritic [Recovering/Resolving]
  - Contusion [Unknown]
  - Fatigue [Unknown]
  - Scar [Unknown]
  - Burning sensation [Unknown]
  - Herpes zoster [Unknown]
  - Scab [Recovering/Resolving]
  - Somnolence [Unknown]
  - Off label use [Unknown]

NARRATIVE: CASE EVENT DATE: 20240101
